FAERS Safety Report 6465983-7 (Version None)
Quarter: 2009Q4

REPORT INFORMATION
  Report Type: 
  Country: None (occurrence: None)
  Receive Date: 20091202
  Receipt Date: 20091123
  Transmission Date: 20100525
  Serious: Yes (Hospitalization)
  Sender: FDA-Public Use
  Company Number: GB-RANBAXY-2009RR-29404

PATIENT
  Age: 25 Year
  Sex: Female

DRUGS (2)
  1. PARACETAMOL [Suspect]
     Indication: DRUG USE FOR UNKNOWN INDICATION
     Dosage: 35 G, UNK
     Route: 065
  2. ALCOHOL [Concomitant]
     Dosage: 37 UNITS

REACTIONS (5)
  - ADJUSTMENT DISORDER [None]
  - BLOOD TEST ABNORMAL [None]
  - DEPRESSION [None]
  - DRUG EXPOSURE DURING PREGNANCY [None]
  - OVERDOSE [None]
